FAERS Safety Report 8461870 (Version 4)
Quarter: 2012Q4

REPORT INFORMATION
  Report Type: Report from Study
  Country: US (occurrence: US)
  Receive Date: 20120315
  Receipt Date: 20121206
  Transmission Date: 20130627
  Serious: Yes (Death, Hospitalization)
  Sender: FDA-Public Use
  Company Number: US-BAXTER-2012BH007554

PATIENT
  Age: 61 Year
  Sex: Male

DRUGS (9)
  1. CYTOXAN [Suspect]
     Indication: MULTIPLE MYELOMA
     Route: 042
     Dates: start: 20110908, end: 20110908
  2. VELCADE [Suspect]
     Indication: MULTIPLE MYELOMA
     Route: 042
     Dates: start: 20110908, end: 20111013
  3. DEXAMETHASONE [Suspect]
     Indication: MULTIPLE MYELOMA
     Route: 048
  4. AMBIEN [Concomitant]
     Indication: INSOMNIA
     Route: 048
     Dates: start: 20100520
  5. DILAUDID [Concomitant]
     Indication: PAIN
     Route: 048
     Dates: start: 20100628
  6. FENTANYL [Concomitant]
     Indication: PAIN
     Route: 061
     Dates: start: 20110916
  7. LORAZEPAM [Concomitant]
     Indication: PAIN
     Route: 048
     Dates: start: 20100614
  8. MORPHINE SULFATE [Concomitant]
     Indication: PAIN
     Route: 048
     Dates: start: 20111018
  9. COMPAZINE [Concomitant]
     Indication: NAUSEA
     Route: 048
     Dates: start: 20110928

REACTIONS (2)
  - Plasma cell myeloma [Fatal]
  - Back pain [Recovered/Resolved]
